FAERS Safety Report 14474940 (Version 10)
Quarter: 2018Q4

REPORT INFORMATION
  Report Type: Report from Study
  Country: DE (occurrence: DE)
  Receive Date: 20180201
  Receipt Date: 20181217
  Transmission Date: 20190204
  Serious: Yes (Hospitalization, Other)
  Sender: FDA-Public Use
  Company Number: DE-PFIZER INC-2018037732

PATIENT
  Age: 66 Year
  Sex: Male
  Weight: 52 kg

DRUGS (9)
  1. IRINOTECAN [Suspect]
     Active Substance: IRINOTECAN
     Indication: COLORECTAL CANCER METASTATIC
     Dosage: 250 MG, UNK
     Dates: start: 20171013
  2. PANITUMUMAB [Suspect]
     Active Substance: PANITUMUMAB
     Indication: COLORECTAL CANCER METASTATIC
     Dosage: 360 MG, UNK
     Route: 042
     Dates: start: 20180103
  3. 5 FU [Suspect]
     Active Substance: FLUOROURACIL
     Dosage: 650 MG, UNK
     Route: 040
     Dates: start: 20180103
  4. IRINOTECAN [Suspect]
     Active Substance: IRINOTECAN
     Dosage: 250 MG, UNK
     Dates: start: 20180103
  5. CALCIUM FOLINATE [Suspect]
     Active Substance: LEUCOVORIN CALCIUM
     Dosage: 650 MG, UNK
     Dates: start: 20180103
  6. 5 FU [Suspect]
     Active Substance: FLUOROURACIL
     Indication: COLORECTAL CANCER METASTATIC
     Dosage: 3600 MG, UNK
     Route: 042
     Dates: start: 20171013
  7. CALCIUM FOLINATE [Suspect]
     Active Substance: LEUCOVORIN CALCIUM
     Indication: COLORECTAL CANCER METASTATIC
     Dosage: 650 MG, UNK
     Dates: start: 20171013
  8. 5 FU [Suspect]
     Active Substance: FLUOROURACIL
     Dosage: 1900 MG, UNK
     Route: 042
     Dates: start: 20180103
  9. 5 FU [Suspect]
     Active Substance: FLUOROURACIL
     Dosage: 650 MG, UNK
     Route: 040
     Dates: start: 20171013

REACTIONS (3)
  - Vena cava thrombosis [Recovered/Resolved]
  - Catheter site thrombosis [Not Recovered/Not Resolved]
  - Subclavian vein thrombosis [Recovered/Resolved]

NARRATIVE: CASE EVENT DATE: 20180114
